FAERS Safety Report 22369507 (Version 2)
Quarter: 2023Q2

REPORT INFORMATION
  Report Type: Report from Study
  Country: CA (occurrence: CA)
  Receive Date: 20230526
  Receipt Date: 20230528
  Transmission Date: 20230722
  Serious: Yes (Other)
  Sender: FDA-Public Use
  Company Number: CA-BIOGEN-2023BI01206856

PATIENT
  Age: 46 Year
  Sex: Female

DRUGS (1)
  1. TYSABRI [Suspect]
     Active Substance: NATALIZUMAB
     Indication: Multiple sclerosis
     Route: 050
     Dates: start: 20230329

REACTIONS (16)
  - Intervertebral disc injury [Unknown]
  - Paraesthesia [Unknown]
  - Skin lesion [Unknown]
  - Aphasia [Unknown]
  - Motor dysfunction [Unknown]
  - Stress urinary incontinence [Unknown]
  - Cognitive disorder [Unknown]
  - Musculoskeletal disorder [Unknown]
  - Mobility decreased [Unknown]
  - Intervertebral disc protrusion [Unknown]
  - Asthenia [Unknown]
  - Dysstasia [Unknown]
  - Multiple sclerosis relapse [Not Recovered/Not Resolved]
  - Neurological symptom [Not Recovered/Not Resolved]
  - Headache [Unknown]
  - Fatigue [Unknown]

NARRATIVE: CASE EVENT DATE: 20230329
